FAERS Safety Report 4860466-X (Version None)
Quarter: 2005Q4

REPORT INFORMATION
  Report Type: 
  Country: None (occurrence: None)
  Receive Date: 20051215
  Receipt Date: 20051202
  Transmission Date: 20060501
  Serious: Yes (Other)
  Sender: FDA-Public Use
  Company Number: 2005163113

PATIENT
  Sex: Female
  Weight: 56.6996 kg

DRUGS (5)
  1. NEURONTIN [Suspect]
     Indication: TRIGEMINAL NEURALGIA
     Dosage: 300 MG (100 MG, 3 IN 1 D),
     Dates: end: 20050101
  2. LYRICA [Suspect]
     Indication: VTH NERVE INJURY
     Dosage: 150 MG (75MG, 2 IN 1 D),
     Dates: start: 20041101
  3. LIDODERM [Suspect]
     Indication: TRIGEMINAL NEURALGIA
     Dosage: TRANSDERMAL
     Route: 062
  4. ALEVE [Concomitant]
  5. MOTRIN [Concomitant]

REACTIONS (17)
  - BODY HEIGHT DECREASED [None]
  - CEREBROVASCULAR ACCIDENT [None]
  - DRUG EFFECT DECREASED [None]
  - DRUG INEFFECTIVE [None]
  - DYSARTHRIA [None]
  - EATING DISORDER [None]
  - FATIGUE [None]
  - HYPERSOMNIA [None]
  - HYPOACUSIS [None]
  - MEMORY IMPAIRMENT [None]
  - NASAL DISORDER [None]
  - PAIN [None]
  - SOMNOLENCE [None]
  - TREMOR [None]
  - VISION BLURRED [None]
  - VISUAL ACUITY REDUCED [None]
  - WEIGHT DECREASED [None]
